FAERS Safety Report 7985326-7 (Version None)
Quarter: 2011Q4

REPORT INFORMATION
  Report Type: 
  Country: None (occurrence: None)
  Receive Date: 20111123
  Receipt Date: 20110727
  Transmission Date: 20120403
  Serious: No
  Sender: FDA-Public Use
  Company Number: 333697

PATIENT
  Age: 71 Year
  Sex: Female

DRUGS (4)
  1. ZOCOR [Concomitant]
  2. CODEINE SULFATE [Concomitant]
  3. VICTOZA [Suspect]
     Indication: TYPE 2 DIABETES MELLITUS
     Dosage: SUBCUTANEOUS
     Route: 058
  4. AVANDIA [Concomitant]

REACTIONS (1)
  - NAUSEA [None]
